FAERS Safety Report 9107511 (Version 2)
Quarter: 2013Q3

REPORT INFORMATION
  Report Type: Spontaneous
  Country: JP (occurrence: JP)
  Receive Date: 20130221
  Receipt Date: 20130711
  Transmission Date: 20140515
  Serious: Yes (Hospitalization)
  Sender: FDA-Public Use
  Company Number: JP-009507513-1207JPN005092

PATIENT
  Age: 72 Year
  Sex: Female

DRUGS (3)
  1. JANUVIA TABLETS 50MG [Suspect]
     Dosage: 50 MG, QD
     Route: 048
     Dates: start: 20110131
  2. METFORMIN HYDROCHLORIDE [Concomitant]
     Indication: DIABETES MELLITUS
     Dosage: 1500 MG, QD
     Route: 048
     Dates: start: 20101007
  3. MEVAN [Concomitant]
     Indication: HYPERLIPIDAEMIA
     Dosage: 5 MG, QD
     Route: 048
     Dates: start: 20101007

REACTIONS (1)
  - Seronegative arthritis [Recovering/Resolving]
